FAERS Safety Report 8463663-X (Version None)
Quarter: 2012Q2

REPORT INFORMATION
  Report Type: 
  Country: None (occurrence: None)
  Receive Date: 20120625
  Receipt Date: 20120619
  Transmission Date: 20120825
  Serious: Yes (Disabling)
  Sender: FDA-Public Use
  Company Number: GB-ROCHE-1039008

PATIENT
  Sex: Female
  Weight: 98 kg

DRUGS (11)
  1. METHOTREXATE [Concomitant]
  2. BETAHISTINE [Concomitant]
  3. NORTRIPTYLINE HYDROCHLORIDE [Concomitant]
  4. ACTEMRA [Suspect]
     Indication: PRODUCT USED FOR UNKNOWN INDICATION
     Route: 065
     Dates: start: 20110728
  5. AZULFIDINE [Concomitant]
  6. OMEPRAZOLE [Concomitant]
  7. MABTHERA [Suspect]
     Indication: PRODUCT USED FOR UNKNOWN INDICATION
     Route: 065
     Dates: start: 20110204
  8. PREDNISOLONE [Concomitant]
  9. CITALOPRAM HYDROBROMIDE [Concomitant]
  10. ALENDRONATE SODIUM [Concomitant]
  11. CALCIUM CARBONATE [Concomitant]

REACTIONS (2)
  - PHLEBITIS [None]
  - VISION BLURRED [None]
